FAERS Safety Report 14247859 (Version 1)
Quarter: 2017Q4

REPORT INFORMATION
  Report Type: Spontaneous
  Country: US (occurrence: US)
  Receive Date: 20171204
  Receipt Date: 20171204
  Transmission Date: 20180321
  Serious: Yes (Other)
  Sender: FDA-Public Use
  Company Number: US-PFIZER INC-2017514388

PATIENT
  Age: 40 Year
  Sex: Female
  Weight: 73.48 kg

DRUGS (1)
  1. DILANTIN [Suspect]
     Active Substance: PHENYTOIN
     Indication: SEIZURE
     Dosage: 30MG ONE CAPSULE BY MOUTH TWO TIMES A DAY
     Route: 048

REACTIONS (3)
  - Drug effect incomplete [Unknown]
  - Drug dose omission [Not Recovered/Not Resolved]
  - Heat stroke [Unknown]

NARRATIVE: CASE EVENT DATE: 201705
